FAERS Safety Report 21579075 (Version 2)
Quarter: 2023Q1

REPORT INFORMATION
  Report Type: Spontaneous
  Country: US (occurrence: US)
  Receive Date: 20221110
  Receipt Date: 20230105
  Transmission Date: 20230418
  Serious: No
  Sender: FDA-Public Use
  Company Number: US-SA-SAC20221103002127

PATIENT
  Age: 60 Year
  Sex: Female
  Weight: 48.5 kg

DRUGS (1)
  1. DUPIXENT [Suspect]
     Active Substance: DUPILUMAB
     Indication: Dermatitis atopic
     Dosage: 600 MG, 1X
     Route: 058
     Dates: start: 20221020, end: 20221020

REACTIONS (5)
  - Dry skin [Unknown]
  - Skin fissures [Unknown]
  - Melanocytic naevus [Unknown]
  - Pruritus [Unknown]
  - Skin exfoliation [Unknown]
